FAERS Safety Report 19615617 (Version 1)
Quarter: 2021Q3

REPORT INFORMATION
  Report Type: Other
  Country: US (occurrence: US)
  Receive Date: 20210727
  Receipt Date: 20210727
  Transmission Date: 20211014
  Serious: Yes (Other)
  Sender: FDA-Public Use
  Company Number: US-DEXPHARM-20211159

PATIENT
  Age: 73 Year
  Sex: Female

DRUGS (9)
  1. METHYLPREDNISOLONE. [Concomitant]
     Active Substance: METHYLPREDNISOLONE
  2. ABATACEPT [Suspect]
     Active Substance: ABATACEPT
     Indication: RHEUMATOID ARTHRITIS
  3. OMEPRAZOLE. [Suspect]
     Active Substance: OMEPRAZOLE
  4. TACROLIMUS. [Concomitant]
     Active Substance: TACROLIMUS
     Route: 050
  5. PREDNISONE. [Concomitant]
     Active Substance: PREDNISONE
  6. HYDROCORTISONE. [Concomitant]
     Active Substance: HYDROCORTISONE
     Route: 050
  7. TOCILIZUMAB. [Concomitant]
     Active Substance: TOCILIZUMAB
     Indication: RHEUMATOID ARTHRITIS
  8. HYDROXYCHLOROQUINE [Concomitant]
     Active Substance: HYDROXYCHLOROQUINE
     Indication: SUBACUTE CUTANEOUS LUPUS ERYTHEMATOSUS
  9. AMLODIPINE [Suspect]
     Active Substance: AMLODIPINE BESYLATE

REACTIONS (2)
  - Condition aggravated [Recovered/Resolved]
  - Subacute cutaneous lupus erythematosus [Recovered/Resolved]
